FAERS Safety Report 5303733-8 (Version None)
Quarter: 2007Q2

REPORT INFORMATION
  Report Type: 
  Country: None (occurrence: None)
  Receive Date: 20070420
  Receipt Date: 20070411
  Transmission Date: 20071010
  Serious: Yes (Hospitalization)
  Sender: FDA-Public Use
  Company Number: JP-MERCK-0704USA03089

PATIENT

DRUGS (1)
  1. VASOTEC [Suspect]
     Route: 048

REACTIONS (3)
  - ANURIA [None]
  - HYPOTENSION [None]
  - RENAL FAILURE [None]
